FAERS Safety Report 8838289 (Version 2)
Quarter: 2015Q3

REPORT INFORMATION
  Report Type: Report from Study
  Country: US (occurrence: US)
  Receive Date: 20121012
  Receipt Date: 20150708
  Transmission Date: 20151125
  Serious: Yes (Death, Other)
  Sender: FDA-Public Use
  Company Number: US-ROCHE-1139730

PATIENT
  Sex: Female
  Weight: 29 kg

DRUGS (6)
  1. PROTROPIN [Suspect]
     Active Substance: SOMATREM
     Route: 058
  2. PROTROPIN [Suspect]
     Active Substance: SOMATREM
     Dosage: 6 DAYS PER WEEK
     Route: 058
  3. PROTROPIN [Suspect]
     Active Substance: SOMATREM
     Route: 058
  4. PROTROPIN [Suspect]
     Active Substance: SOMATREM
     Dosage: 6 DAYS PER WEEK
     Route: 058
  5. PROTROPIN [Suspect]
     Active Substance: SOMATREM
     Dosage: 6 DAYS PER WEEK
     Route: 058
  6. PROTROPIN [Suspect]
     Active Substance: SOMATREM
     Indication: HYPOTHALAMO-PITUITARY DISORDER
     Route: 058
     Dates: start: 19890609

REACTIONS (2)
  - Death [Fatal]
  - Neoplasm [Unknown]
